FAERS Safety Report 10592676 (Version 6)
Quarter: 2015Q1

REPORT INFORMATION
  Report Type: Spontaneous
  Country: US (occurrence: US)
  Receive Date: 20141119
  Receipt Date: 20150130
  Transmission Date: 20150720
  Serious: Yes (Death, Hospitalization)
  Sender: FDA-Public Use
  Company Number: US-JNJFOC-20141110864

PATIENT
  Age: 31 Year
  Sex: Female
  Weight: 68.04 kg

DRUGS (8)
  1. TYLENOL EXTRA STRENGTH [Suspect]
     Active Substance: ACETAMINOPHEN
     Indication: PYREXIA
     Route: 048
     Dates: start: 20120401, end: 20120417
  2. AZITHROMYCIN [Concomitant]
     Active Substance: AZITHROMYCIN ANHYDROUS
     Indication: URINARY TRACT INFECTION
     Route: 048
  3. OXYCODONE [Concomitant]
     Active Substance: OXYCODONE
     Indication: PAIN
     Dosage: AS NECESSARY
     Route: 048
  4. MULTIVITAMINS [Concomitant]
     Active Substance: VITAMINS
     Indication: PRODUCT USED FOR UNKNOWN INDICATION
     Route: 048
  5. TYLENOL REGULAR STRENGTH [Suspect]
     Active Substance: ACETAMINOPHEN
     Indication: PYREXIA
     Route: 048
     Dates: start: 20120401, end: 20120417
  6. OMEPRAZOLE/SODIUM BICARBONATE [Concomitant]
     Active Substance: OMEPRAZOLE\SODIUM BICARBONATE
     Indication: PRODUCT USED FOR UNKNOWN INDICATION
     Dosage: 20-1.1MG-GRAM ORAL DAILY
     Route: 048
  7. FUROSEMIDE. [Concomitant]
     Active Substance: FUROSEMIDE
     Indication: RENAL FAILURE
     Route: 048
  8. ZENPEP [Concomitant]
     Active Substance: PANCRELIPASE\PANCRELIPASE AMYLASE\PANCRELIPASE LIPASE\PANCRELIPASE PROTEASE
     Indication: PRODUCT USED FOR UNKNOWN INDICATION
     Dosage: 10,000-34,000 -55,00 UNIT
     Route: 048

REACTIONS (2)
  - Acute hepatic failure [Fatal]
  - Accidental overdose [Fatal]

NARRATIVE: CASE EVENT DATE: 201204
